FAERS Safety Report 13682568 (Version 3)
Quarter: 2017Q3

REPORT INFORMATION
  Report Type: Spontaneous
  Country: FR (occurrence: FR)
  Receive Date: 20170623
  Receipt Date: 20170802
  Transmission Date: 20171127
  Serious: Yes (Hospitalization)
  Sender: FDA-Public Use
  Company Number: FR-BAYER-2017-118478

PATIENT
  Age: 48 Year
  Sex: Female

DRUGS (1)
  1. MIRENA [Suspect]
     Active Substance: LEVONORGESTREL
     Indication: CONTRACEPTION
     Dosage: 20 MCG/24HR, CONT
     Route: 015
     Dates: start: 20151015, end: 20170610

REACTIONS (6)
  - Adnexa uteri pain [Recovering/Resolving]
  - Diffuse alopecia [Recovering/Resolving]
  - Urinary tract infection [Recovering/Resolving]
  - Weight increased [Recovering/Resolving]
  - Breast cyst [Recovered/Resolved]
  - Back pain [Recovering/Resolving]
